FAERS Safety Report 9825935 (Version 1)
Quarter: 2013Q4

REPORT INFORMATION
  Report Type: Spontaneous
  Country: US (occurrence: None)
  Receive Date: 20131104
  Receipt Date: 20131104
  Transmission Date: 20140711
  Serious: Yes (Other)
  Sender: FDA-Public Use
  Company Number: 1000048472

PATIENT
  Age: 73 Year
  Sex: Female
  Weight: 65 kg

DRUGS (5)
  1. DALIRESP (ROFLUMILAST) (500 MICROGRAM, TABLETS) [Suspect]
     Indication: CHRONIC OBSTRUCTIVE PULMONARY DISEASE
     Dosage: 500 MCG, 1 IN 1 D
     Route: 048
     Dates: start: 201307
  2. OXYGEN [Concomitant]
  3. BROVANA [Concomitant]
  4. BUDESONIDE [Concomitant]
  5. IPRATROPIUM [Concomitant]

REACTIONS (4)
  - Diarrhoea [None]
  - Back pain [None]
  - Decreased appetite [None]
  - Asthenia [None]
